FAERS Safety Report 4266880-8 (Version None)
Quarter: 2004Q1

REPORT INFORMATION
  Report Type: 
  Country: None (occurrence: None)
  Receive Date: 20040108
  Receipt Date: 20040108
  Transmission Date: 20041129
  Serious: Yes (Other)
  Sender: FDA-Public Use
  Company Number: None

PATIENT
  Age: 74 Year
  Sex: Female
  Weight: 65.9 kg

DRUGS (5)
  1. TAXOTERE [Suspect]
     Indication: LUNG NEOPLASM MALIGNANT
     Dosage: 57.6 MG Q WEEK X 3 IV
     Route: 042
     Dates: start: 20030529
  2. GEMCITABINE [Suspect]
     Indication: LUNG NEOPLASM MALIGNANT
     Dosage: 960 MG Q WEEK X 3 IV
     Route: 042
     Dates: start: 20030529
  3. PRILOSEC [Concomitant]
  4. GARLIC [Concomitant]
  5. ASPIRIN [Concomitant]

REACTIONS (2)
  - OVARIAN DISORDER [None]
  - THROMBOSIS [None]
